FAERS Safety Report 4321921-4 (Version None)
Quarter: 2004Q1

REPORT INFORMATION
  Report Type: 
  Country: None (occurrence: None)
  Receive Date: 20040319
  Receipt Date: 20031218
  Transmission Date: 20041129
  Serious: No
  Sender: FDA-Public Use
  Company Number: 200314478

PATIENT
  Sex: Female

DRUGS (4)
  1. LUMIGAN [Suspect]
     Indication: GLAUCOMA
     Dates: start: 20030831
  2. GLUCOPHAGE [Concomitant]
  3. AVANDIA [Concomitant]
  4. MICRONASE [Concomitant]

REACTIONS (1)
  - BLOOD GLUCOSE INCREASED [None]
